FAERS Safety Report 13896328 (Version 1)
Quarter: 2017Q3

REPORT INFORMATION
  Report Type: Spontaneous
  Country: US (occurrence: None)
  Receive Date: 20170814
  Receipt Date: 20170814
  Transmission Date: 20171127
  Serious: Yes (Life-Threatening)
  Sender: FDA-Public Use
  Company Number: None

PATIENT
  Age: 25 Year
  Sex: Female
  Weight: 48.08 kg

DRUGS (1)
  1. BUPRENORPHINE-NALOCONE SL TABS 8/2 MG [Suspect]
     Active Substance: BUPRENORPHINE HYDROCHLORIDE\NALOXONE HYDROCHLORIDE
     Indication: DRUG DEPENDENCE
     Route: 060
     Dates: start: 20170714, end: 20170811

REACTIONS (5)
  - Overdose [None]
  - Vomiting [None]
  - Drug ineffective [None]
  - Weight decreased [None]
  - Headache [None]

NARRATIVE: CASE EVENT DATE: 20170714
